FAERS Safety Report 5466564-4 (Version None)
Quarter: 2007Q3

REPORT INFORMATION
  Report Type: 
  Country: None (occurrence: None)
  Receive Date: 20070925
  Receipt Date: 20070925
  Transmission Date: 20080115
  Serious: Yes (Other)
  Sender: FDA-Public Use
  Company Number: None

PATIENT
  Age: 60 Year
  Sex: Female
  Weight: 100 kg

DRUGS (2)
  1. RANITIDINE [Suspect]
     Indication: PROPHYLAXIS
     Dosage: 150MG DAILY AT BEDTIME PO
     Route: 048
     Dates: start: 20070913, end: 20070916
  2. RANITIDINE [Suspect]
     Indication: PROPHYLAXIS
     Dosage: 150MG DAILY AT BEDTIME PO
     Route: 048
     Dates: start: 20070918

REACTIONS (1)
  - WHITE BLOOD CELL COUNT DECREASED [None]
